FAERS Safety Report 6721212-8 (Version None)
Quarter: 2010Q2

REPORT INFORMATION
  Report Type: 
  Country: None (occurrence: None)
  Receive Date: 20100512
  Receipt Date: 20100506
  Transmission Date: 20101027
  Serious: Yes (Life-Threatening, Hospitalization)
  Sender: FDA-Public Use
  Company Number: ES-BAYER-201024496GPV

PATIENT
  Age: 89 Year
  Sex: Female

DRUGS (6)
  1. ASPIRIN [Suspect]
     Route: 048
     Dates: end: 20081118
  2. IBUPROFENO [Interacting]
     Indication: PAIN
     Route: 048
     Dates: start: 20081031, end: 20081118
  3. CARVEDILOL [Concomitant]
     Indication: HYPERTENSION
     Route: 048
     Dates: end: 20081118
  4. HIDROSALURETIL, 20 COMPRIMIDOS [Concomitant]
     Indication: HYPERTENSION
     Route: 048
     Dates: end: 20081118
  5. METFORMIN HCL [Concomitant]
     Indication: TYPE 2 DIABETES MELLITUS
     Route: 048
     Dates: end: 20081118
  6. OMEPRAZOLE [Concomitant]
     Route: 048
     Dates: end: 20081118

REACTIONS (2)
  - HAEMOGLOBIN DECREASED [None]
  - UPPER GASTROINTESTINAL HAEMORRHAGE [None]
